FAERS Safety Report 8622764-3 (Version None)
Quarter: 2012Q3

REPORT INFORMATION
  Report Type: 
  Country: None (occurrence: None)
  Receive Date: 20120810
  Receipt Date: 20120730
  Transmission Date: 20120928
  Serious: Yes (Other)
  Sender: FDA-Public Use
  Company Number: ACO_31349_2012

PATIENT
  Age: 54 Year
  Sex: Female

DRUGS (3)
  1. AMPYRA [Suspect]
     Indication: PRODUCT USED FOR UNKNOWN INDICATION
     Dosage: 10 MG, Q 12 HRS, ORAL
     Route: 048
     Dates: start: 20100801
  2. TYSABRI [Suspect]
     Indication: PRODUCT USED FOR UNKNOWN INDICATION
     Dosage: 1 DOSE
     Dates: start: 20120701, end: 20120701
  3. GILENYA [Suspect]
     Indication: PRODUCT USED FOR UNKNOWN INDICATION
     Dates: start: 20111201, end: 20120716

REACTIONS (9)
  - OEDEMA PERIPHERAL [None]
  - PAIN IN EXTREMITY [None]
  - DRUG DOSE OMISSION [None]
  - BALANCE DISORDER [None]
  - MUSCULOSKELETAL STIFFNESS [None]
  - FALL [None]
  - HALLUCINATION [None]
  - GAIT DISTURBANCE [None]
  - ASTHENIA [None]
